FAERS Safety Report 20157978 (Version 4)
Quarter: 2022Q1

REPORT INFORMATION
  Report Type: Spontaneous
  Country: US (occurrence: US)
  Receive Date: 20211207
  Receipt Date: 20220124
  Transmission Date: 20220423
  Serious: No
  Sender: FDA-Public Use
  Company Number: US-SA-SAC20211202001323

PATIENT
  Age: 80 Year
  Sex: Female

DRUGS (24)
  1. DUPIXENT [Suspect]
     Active Substance: DUPILUMAB
     Indication: Chronic rhinosinusitis with nasal polyps
     Dosage: 300 MG, QOW
     Route: 058
     Dates: start: 20210929
  2. DUPIXENT [Suspect]
     Active Substance: DUPILUMAB
     Indication: Asthma
  3. DUPIXENT [Suspect]
     Active Substance: DUPILUMAB
     Indication: Nasal polyps
  4. ALBUTEROL SULFATE [Concomitant]
     Active Substance: ALBUTEROL SULFATE
  5. SUCRALFATE [Concomitant]
     Active Substance: SUCRALFATE
  6. TOUJEO [Concomitant]
     Active Substance: INSULIN GLARGINE
  7. PANTOPRAZOLE SODIUM [Concomitant]
     Active Substance: PANTOPRAZOLE SODIUM
  8. BOOSTRIX [Concomitant]
     Active Substance: TETANUS TOXOID, REDUCED DIPHTHERIA TOXOID AND ACELLULAR PERTUSSIS VACCINE, ADSORBED ANTIGENS
     Indication: Immunisation
  9. ELIQUIS [Concomitant]
     Active Substance: APIXABAN
  10. AMLODIPINE BESYLATE [Concomitant]
     Active Substance: AMLODIPINE BESYLATE
  11. OZEMPIC [Concomitant]
     Active Substance: SEMAGLUTIDE
  12. ALLOPURINOL [Concomitant]
     Active Substance: ALLOPURINOL
  13. GABAPENTIN [Concomitant]
     Active Substance: GABAPENTIN
  14. DORZOLAMIDE\TIMOLOL [Concomitant]
     Active Substance: DORZOLAMIDE\TIMOLOL
  15. GAVILYTE - C [Concomitant]
     Active Substance: POLYETHYLENE GLYCOL 3350\POTASSIUM CHLORIDE\SODIUM BICARBONATE\SODIUM CHLORIDE\SODIUM SULFATE
  16. LEVOTHYROXINE SODIUM [Concomitant]
     Active Substance: LEVOTHYROXINE SODIUM
  17. NOVOLOG [Concomitant]
     Active Substance: INSULIN ASPART
  18. BREO ELLIPTA [Concomitant]
     Active Substance: FLUTICASONE FUROATE\VILANTEROL TRIFENATATE
  19. HYDROCHLOROTHIAZIDE [Concomitant]
     Active Substance: HYDROCHLOROTHIAZIDE
  20. SIMVASTATIN [Concomitant]
     Active Substance: SIMVASTATIN
  21. CARVEDILOL [Concomitant]
     Active Substance: CARVEDILOL
  22. PREDNISONE [Concomitant]
     Active Substance: PREDNISONE
  23. ALBENDAZOLE [Concomitant]
     Active Substance: ALBENDAZOLE
  24. MINERALS\VITAMINS [Concomitant]
     Active Substance: MINERALS\VITAMINS
     Dosage: UNK

REACTIONS (12)
  - Asthma [Unknown]
  - Productive cough [Unknown]
  - Upper-airway cough syndrome [Unknown]
  - Nasal congestion [Unknown]
  - Throat clearing [Unknown]
  - Ocular hyperaemia [Unknown]
  - Cough [Unknown]
  - Respiratory tract congestion [Unknown]
  - Upper respiratory tract congestion [Unknown]
  - Exposure to SARS-CoV-2 [Unknown]
  - Product dose omission issue [Unknown]
  - Product use in unapproved indication [Unknown]

NARRATIVE: CASE EVENT DATE: 20210101
